FAERS Safety Report 6338868-4 (Version None)
Quarter: 2009Q3

REPORT INFORMATION
  Report Type: 
  Country: None (occurrence: None)
  Receive Date: 20090903
  Receipt Date: 20090824
  Transmission Date: 20100115
  Serious: Yes (Other)
  Sender: FDA-Public Use
  Company Number: PHHY2009GB36584

PATIENT
  Sex: Male
  Weight: 68.2 kg

DRUGS (2)
  1. IMATINIB MESYLATE [Suspect]
     Indication: CHRONIC MYELOID LEUKAEMIA
  2. LOPERAMIDE [Concomitant]
     Indication: IRRITABLE BOWEL SYNDROME
     Dosage: UNK
     Dates: start: 20080501

REACTIONS (2)
  - DRUG RESISTANCE [None]
  - KAWASAKI'S DISEASE [None]
